FAERS Safety Report 7770708-9 (Version None)
Quarter: 2011Q3

REPORT INFORMATION
  Report Type: 
  Country: None (occurrence: None)
  Receive Date: 20110922
  Receipt Date: 20110228
  Transmission Date: 20111222
  Serious: No
  Sender: FDA-Public Use
  Company Number: US-ASTRAZENECA-2011SE09718

PATIENT
  Age: 61 Year
  Sex: Female

DRUGS (13)
  1. SEROQUEL [Suspect]
     Dosage: INCEREASED TO 600 MG
     Route: 048
  2. SEROQUEL [Suspect]
     Indication: AFFECTIVE DISORDER
     Route: 048
     Dates: end: 20110201
  3. SYNTHROID [Concomitant]
     Indication: HYPOTHYROIDISM
  4. SEROQUEL [Suspect]
     Route: 048
     Dates: start: 20100501
  5. SEROQUEL [Suspect]
     Indication: MANIA
     Route: 048
     Dates: end: 20110201
  6. SEROQUEL [Suspect]
     Route: 048
     Dates: start: 20100501
  7. SEROQUEL [Suspect]
     Dosage: INCEREASED TO 600 MG
     Route: 048
  8. PAIN MEDICATION [Concomitant]
  9. SEROQUEL [Suspect]
     Indication: SLEEP DISORDER
     Route: 048
     Dates: end: 20110201
  10. NOVASTATIN [Concomitant]
  11. SEROQUEL [Suspect]
     Route: 048
     Dates: start: 20100501
  12. SEROQUEL [Suspect]
     Dosage: INCEREASED TO 600 MG
     Route: 048
  13. XANAX [Suspect]
     Route: 065

REACTIONS (13)
  - PALPITATIONS [None]
  - DRUG INEFFECTIVE [None]
  - SLEEP DISORDER [None]
  - PANIC ATTACK [None]
  - NIGHTMARE [None]
  - WRONG DRUG ADMINISTERED [None]
  - FEELING ABNORMAL [None]
  - LIMB INJURY [None]
  - PSYCHOMOTOR HYPERACTIVITY [None]
  - PARAESTHESIA [None]
  - DRUG DOSE OMISSION [None]
  - BIPOLAR DISORDER [None]
  - MANIA [None]
